FAERS Safety Report 7061557-8 (Version None)
Quarter: 2010Q4

REPORT INFORMATION
  Report Type: 
  Country: None (occurrence: None)
  Receive Date: 20101026
  Receipt Date: 20101022
  Transmission Date: 20110411
  Serious: Yes (Life-Threatening, Hospitalization)
  Sender: FDA-Public Use
  Company Number: ES-SANOFI-AVENTIS-2010SA063466

PATIENT
  Age: 70 Year
  Sex: Female
  Weight: 77 kg

DRUGS (11)
  1. TAXOTERE [Suspect]
     Route: 042
     Dates: start: 20101015, end: 20101015
  2. SINTROM [Concomitant]
     Indication: HYPERTENSION
     Route: 048
  3. SINTROM [Concomitant]
     Route: 048
  4. SINTROM [Concomitant]
     Indication: ATRIAL FIBRILLATION
     Route: 048
  5. TRANGOREX [Concomitant]
     Indication: HYPERTENSION
     Route: 048
  6. TRANGOREX [Concomitant]
     Route: 048
  7. TRANGOREX [Concomitant]
     Indication: ATRIAL FIBRILLATION
     Route: 048
  8. SEGURIL [Concomitant]
     Indication: HYPERTENSION
     Route: 048
  9. SEGURIL [Concomitant]
     Route: 048
  10. SEGURIL [Concomitant]
     Indication: ATRIAL FIBRILLATION
     Route: 048
  11. PANTOPRAZOLE [Concomitant]

REACTIONS (8)
  - ANAPHYLACTIC REACTION [None]
  - CARDIAC ARREST [None]
  - DIZZINESS [None]
  - DYSPNOEA [None]
  - ERYTHEMA [None]
  - FEELING HOT [None]
  - RESPIRATORY ARREST [None]
  - SYNCOPE [None]
